FAERS Safety Report 6030889-4 (Version None)
Quarter: 2009Q1

REPORT INFORMATION
  Report Type: 
  Country: None (occurrence: None)
  Receive Date: 20090106
  Receipt Date: 20081222
  Transmission Date: 20090719
  Serious: Yes (Hospitalization)
  Sender: FDA-Public Use
  Company Number: 233213K08USA

PATIENT
  Age: 62 Year
  Sex: Male

DRUGS (5)
  1. REBIF [Suspect]
     Indication: MULTIPLE SCLEROSIS
     Dosage: 44 MCG, 3 IN 1 WEEKS, SUBCUTANEOUS
     Route: 058
     Dates: start: 20080804, end: 20081201
  2. NEURONTIN [Concomitant]
  3. BACLOFEN [Concomitant]
  4. XANAX [Concomitant]
  5. UNSPECIFIED INFUSION (ALL OTHER THERAPEUTIC PRODUCTS) [Concomitant]

REACTIONS (3)
  - CONFUSIONAL STATE [None]
  - HYPERTENSION [None]
  - HYPOTENSION [None]
